FAERS Safety Report 19518667 (Version 1)
Quarter: 2021Q3

REPORT INFORMATION
  Report Type: Spontaneous
  Country: US (occurrence: US)
  Receive Date: 20210710
  Receipt Date: 20210710
  Transmission Date: 20211014
  Serious: Yes (Life-Threatening, Hospitalization)
  Sender: FDA-Public Use
  Company Number: None

PATIENT
  Age: 4 Week
  Sex: Male

DRUGS (1)
  1. PRESCRIBED RANITIDINE HCL 150MG [Suspect]
     Active Substance: RANITIDINE HYDROCHLORIDE

REACTIONS (5)
  - Adenocarcinoma [None]
  - Microcytic anaemia [None]
  - Pleural effusion [None]
  - Acute oesophageal mucosal lesion [None]
  - Lymphoma [None]

NARRATIVE: CASE EVENT DATE: 20210325
